FAERS Safety Report 4612712-5 (Version None)
Quarter: 2005Q1

REPORT INFORMATION
  Report Type: 
  Country: None (occurrence: None)
  Receive Date: 20050316
  Receipt Date: 20041119
  Transmission Date: 20050727
  Serious: Yes (Death, Hospitalization)
  Sender: FDA-Public Use
  Company Number: 2003179850US

PATIENT
  Age: 71 Year
  Sex: Male
  Weight: 75.7 kg

DRUGS (7)
  1. CAMPTOSAR [Suspect]
     Indication: NON-SMALL CELL LUNG CANCER
     Dosage: 100 MG/M2 (2 PER CYCLE, CYCLE 3), INTRAVENOUS
     Route: 042
     Dates: start: 20030804
  2. CELEBREX [Suspect]
     Indication: NON-SMALL CELL LUNG CANCER
     Dosage: 800 MG (400 MG, 2 IN 1 D), ORAL
     Route: 048
     Dates: start: 20030804
  3. GEMCITABINE (GEMCITABINE) [Suspect]
     Indication: NON-SMALL CELL LUNG CANCER
     Dosage: 1000 MG/M2 (2 PER CYCLE, CYCLE 3), INTRAVENOUS
     Route: 042
     Dates: start: 20030804
  4. ATENOLOL [Concomitant]
  5. FINASTERIDE [Concomitant]
  6. FUROSEMIDE (FUROSEMIDE) [Concomitant]
  7. FENTANYL (FENTANYL) [Concomitant]

REACTIONS (16)
  - AGONAL DEATH STRUGGLE [None]
  - APNOEA [None]
  - ATRIAL FIBRILLATION [None]
  - BLOOD GLUCOSE INCREASED [None]
  - BLOOD PRESSURE DECREASED [None]
  - DECREASED APPETITE [None]
  - DIARRHOEA [None]
  - FATIGUE [None]
  - HAEMODYNAMIC INSTABILITY [None]
  - HAEMOGLOBIN DECREASED [None]
  - NEUTROPENIC SEPSIS [None]
  - PAIN [None]
  - PLATELET COUNT DECREASED [None]
  - RED BLOOD CELL COUNT DECREASED [None]
  - RESPIRATORY DISTRESS [None]
  - RESPIRATORY RATE DECREASED [None]
